FAERS Safety Report 25333990 (Version 1)
Quarter: 2025Q2

REPORT INFORMATION
  Report Type: Report from Study
  Country: NL (occurrence: NL)
  Receive Date: 20250520
  Receipt Date: 20250520
  Transmission Date: 20250717
  Serious: Yes (Other)
  Sender: RANBAXY
  Company Number: NL-SUN PHARMACEUTICAL INDUSTRIES LTD-2025R1-507722

PATIENT
  Age: 51 Year
  Sex: Male

DRUGS (2)
  1. AMIODARONE [Suspect]
     Active Substance: AMIODARONE
     Indication: Ischaemic cardiomyopathy
     Dosage: 400 MILLIGRAM, DAILY
     Route: 065
  2. METOPROLOL [Suspect]
     Active Substance: METOPROLOL
     Indication: Ischaemic cardiomyopathy
     Dosage: 150 MILLIGRAM, DAILY
     Route: 065

REACTIONS (1)
  - Ventricular tachycardia [Unknown]
